FAERS Safety Report 14747770 (Version 2)
Quarter: 2018Q4

REPORT INFORMATION
  Report Type: Report from Study
  Country: CA (occurrence: CA)
  Receive Date: 20180411
  Receipt Date: 20181102
  Transmission Date: 20190204
  Serious: No
  Sender: FDA-Public Use
  Company Number: CA-OTSUKA-2018_008626

PATIENT
  Sex: Female
  Weight: 56.69 kg

DRUGS (1)
  1. ARIPIPRAZOLE. [Suspect]
     Active Substance: ARIPIPRAZOLE
     Indication: SCHIZOPHRENIA
     Dosage: UNK (Q4W)
     Route: 065
     Dates: start: 20170921

REACTIONS (1)
  - No adverse event [Unknown]
